APPROVED DRUG PRODUCT: VORICONAZOLE
Active Ingredient: VORICONAZOLE
Strength: 200MG/VIAL
Dosage Form/Route: POWDER;INTRAVENOUS
Application: A212162 | Product #001
Applicant: EUGIA PHARMA SPECIALITIES LTD
Approved: Feb 2, 2023 | RLD: No | RS: No | Type: DISCN